FAERS Safety Report 25194606 (Version 3)
Quarter: 2025Q4

REPORT INFORMATION
  Report Type: Spontaneous
  Country: PA (occurrence: PA)
  Receive Date: 20250414
  Receipt Date: 20251201
  Transmission Date: 20260118
  Serious: Yes (Hospitalization, Other)
  Sender: SANDOZ
  Company Number: PA-002147023-NVSC2025PA059349

PATIENT
  Sex: Female

DRUGS (4)
  1. FULVESTRANT [Suspect]
     Active Substance: FULVESTRANT
     Indication: Bone disorder
     Dosage: UNK
     Route: 065
  2. KISQALI [Suspect]
     Active Substance: RIBOCICLIB SUCCINATE
     Indication: Breast cancer metastatic
     Dosage: 3 DOSAGE FORM
     Route: 065
     Dates: start: 202501
  3. KISQALI [Suspect]
     Active Substance: RIBOCICLIB SUCCINATE
     Dosage: 400 MG, QD
     Route: 048
     Dates: start: 202501
  4. CALCIUM [Concomitant]
     Active Substance: CALCIUM
     Indication: Product used for unknown indication
     Dosage: UNK
     Route: 065

REACTIONS (7)
  - Blood sodium decreased [Recovered/Resolved]
  - Metastasis [Unknown]
  - Abdominal distension [Recovered/Resolved]
  - Decreased immune responsiveness [Unknown]
  - Fall [Recovered/Resolved]
  - Face injury [Recovered/Resolved]
  - Abdominal discomfort [Recovered/Resolved]
